FAERS Safety Report 25674413 (Version 1)
Quarter: 2025Q3

REPORT INFORMATION
  Report Type: Spontaneous
  Country: JP (occurrence: JP)
  Receive Date: 20250813
  Receipt Date: 20250813
  Transmission Date: 20251020
  Serious: Yes (Hospitalization, Other)
  Sender: STRIDES
  Company Number: JP-STRIDES ARCOLAB LIMITED-2025SP010270

PATIENT
  Age: 58 Year
  Sex: Female

DRUGS (3)
  1. OLANZAPINE [Suspect]
     Active Substance: OLANZAPINE
     Indication: Schizophrenia
     Route: 048
  2. LEVOMEPROMAZINE [Concomitant]
     Active Substance: LEVOMEPROMAZINE
     Indication: Schizophrenia
     Route: 065
  3. NITRAZEPAM [Concomitant]
     Active Substance: NITRAZEPAM
     Indication: Sleep disorder
     Route: 065

REACTIONS (7)
  - Altered state of consciousness [Unknown]
  - Hypoaesthesia [Unknown]
  - Urethritis [Recovered/Resolved]
  - Renal impairment [Recovered/Resolved]
  - Gait disturbance [Unknown]
  - Urinary retention [Recovered/Resolved]
  - Diabetic ketoacidosis [Recovering/Resolving]
